FAERS Safety Report 7682028-1 (Version None)
Quarter: 2011Q3

REPORT INFORMATION
  Report Type: 
  Country: None (occurrence: None)
  Receive Date: 20110815
  Receipt Date: 20110802
  Transmission Date: 20111222
  Serious: Yes (Hospitalization)
  Sender: FDA-Public Use
  Company Number: US-ELI_LILLY_AND_COMPANY-US201006004380

PATIENT
  Sex: Female

DRUGS (11)
  1. METOPROLOL TARTRATE [Concomitant]
  2. ASPIRIN [Concomitant]
  3. FORTEO [Suspect]
     Dosage: 20 UG, QD
     Route: 065
     Dates: start: 20100710
  4. DOCUSATE SODIUM [Concomitant]
  5. GLUCOSAMINE + CHONDROITIN [Concomitant]
     Indication: PAIN
  6. FORTEO [Suspect]
     Dosage: 20 UG, QD
     Route: 065
     Dates: end: 20110201
  7. BENAZEPRIL HYDROCHLORIDE [Concomitant]
  8. CALCIUM CITRATE [Concomitant]
  9. VITAMIN D [Concomitant]
  10. SIMVASTATIN [Concomitant]
  11. FORTEO [Suspect]
     Indication: OSTEOPOROSIS
     Dosage: 20 UG, QD
     Route: 065
     Dates: start: 20090206, end: 20100605

REACTIONS (14)
  - PAIN IN EXTREMITY [None]
  - ANXIETY [None]
  - DRUG DOSE OMISSION [None]
  - BLOOD ALKALINE PHOSPHATASE INCREASED [None]
  - FALL [None]
  - HYPOACUSIS [None]
  - LIMB ASYMMETRY [None]
  - KNEE DEFORMITY [None]
  - GAIT DISTURBANCE [None]
  - FATIGUE [None]
  - FEMUR FRACTURE [None]
  - BACK PAIN [None]
  - SLEEP DISORDER [None]
  - DIZZINESS [None]
